FAERS Safety Report 7441016-0 (Version None)
Quarter: 2011Q2

REPORT INFORMATION
  Report Type: 
  Country: None (occurrence: None)
  Receive Date: 20110427
  Receipt Date: 20110418
  Transmission Date: 20111010
  Serious: Yes (Death, Hospitalization)
  Sender: FDA-Public Use
  Company Number: GB-CELGENEUS-167-C5013-11012975

PATIENT
  Sex: Male
  Weight: 86.4 kg

DRUGS (11)
  1. DOCETAXEL [Suspect]
     Dosage: 120 MILLIGRAM
     Route: 065
     Dates: start: 20110125
  2. OMEPRAZOLE [Concomitant]
     Dosage: 40 MILLIGRAM
     Route: 048
     Dates: end: 20110205
  3. ENOXAPARIN [Concomitant]
     Indication: THROMBOSIS PROPHYLAXIS
     Route: 065
  4. CC-5013\PLACEBO [Suspect]
     Indication: PROSTATE CANCER
     Route: 048
     Dates: start: 20101001
  5. INDORAMIN [Concomitant]
     Indication: HYPERTENSION
     Route: 048
     Dates: end: 20110205
  6. FERROUS FUMARATE [Concomitant]
     Route: 048
     Dates: end: 20110205
  7. PREDNISONE [Suspect]
     Indication: PROSTATE CANCER
     Dosage: 10 MILLIGRAM
     Route: 065
     Dates: start: 20101001
  8. INFUMORPH [Concomitant]
     Route: 048
     Dates: end: 20110205
  9. METOCLOPRAMIDE [Concomitant]
     Indication: ANTIEMETIC SUPPORTIVE CARE
     Route: 048
     Dates: end: 20110204
  10. DOCETAXEL [Suspect]
     Indication: PROSTATE CANCER
     Route: 065
     Dates: start: 20101001
  11. PREDNISONE [Suspect]
     Dosage: 10 MILLIGRAM
     Route: 065
     Dates: start: 20110125

REACTIONS (4)
  - PROSTATE CANCER METASTATIC [None]
  - LOWER RESPIRATORY TRACT INFECTION [None]
  - DYSPNOEA [None]
  - PULMONARY EMBOLISM [None]
